FAERS Safety Report 6845329-2 (Version None)
Quarter: 2010Q3

REPORT INFORMATION
  Report Type: 
  Country: None (occurrence: None)
  Receive Date: 20100715
  Receipt Date: 20070820
  Transmission Date: 20110219
  Serious: No
  Sender: FDA-Public Use
  Company Number: US-PFIZER INC-2007070186

PATIENT
  Age: 55 Year
  Sex: Female
  Weight: 68.2 kg

DRUGS (3)
  1. CHANTIX [Suspect]
     Indication: SMOKING CESSATION THERAPY
     Dates: start: 20070815
  2. PAXIL [Concomitant]
  3. WELLBUTRIN [Concomitant]
     Indication: SMOKING CESSATION THERAPY

REACTIONS (2)
  - INCORRECT DOSE ADMINISTERED [None]
  - NAUSEA [None]
